FAERS Safety Report 4570793-1 (Version None)
Quarter: 2005Q1

REPORT INFORMATION
  Report Type: 
  Country: None (occurrence: None)
  Receive Date: 20050202
  Receipt Date: 20050112
  Transmission Date: 20050727
  Serious: Yes (Other)
  Sender: FDA-Public Use
  Company Number: AU_050108313

PATIENT
  Age: 50 Year
  Sex: Male
  Weight: 70 kg

DRUGS (2)
  1. XIGRIS [Suspect]
     Indication: SEPSIS
     Dosage: 172 UG
     Dates: start: 20040326, end: 20040327
  2. XIGRIS [Suspect]

REACTIONS (2)
  - ERYTHEMA MULTIFORME [None]
  - RASH [None]
